FAERS Safety Report 20314976 (Version 1)
Quarter: 2022Q1

REPORT INFORMATION
  Report Type: Spontaneous
  Country: US (occurrence: US)
  Receive Date: 20220110
  Receipt Date: 20220110
  Transmission Date: 20220424
  Serious: No
  Sender: FDA-Public Use
  Company Number: US-JNJFOC-20220107089

PATIENT
  Sex: Male
  Weight: 83.990 kg

DRUGS (1)
  1. SIMPONI [Suspect]
     Active Substance: GOLIMUMAB
     Indication: Ankylosing spondylitis
     Route: 058
     Dates: start: 2018

REACTIONS (5)
  - Fatigue [Unknown]
  - Malaise [Unknown]
  - Headache [Unknown]
  - Rhinorrhoea [Unknown]
  - Weight decreased [Unknown]

NARRATIVE: CASE EVENT DATE: 20210101
